FAERS Safety Report 15460345 (Version 1)
Quarter: 2018Q4

REPORT INFORMATION
  Report Type: Report from Study
  Country: US (occurrence: US)
  Receive Date: 20181003
  Receipt Date: 20181003
  Transmission Date: 20190204
  Serious: Yes (Hospitalization)
  Sender: FDA-Public Use
  Company Number: US-TESARO-US-2018TSO01551

PATIENT
  Sex: Female

DRUGS (1)
  1. ZEJULA [Suspect]
     Active Substance: NIRAPARIB
     Indication: OVARIAN CANCER
     Dosage: 300 MG, QD
     Route: 048
     Dates: start: 20180313, end: 2018

REACTIONS (10)
  - Cough [Recovered/Resolved]
  - Rhinorrhoea [Unknown]
  - Sleep disorder [Recovered/Resolved]
  - Nausea [Recovered/Resolved]
  - Hospitalisation [Unknown]
  - Weight decreased [Not Recovered/Not Resolved]
  - Insomnia [Recovered/Resolved]
  - Platelet count decreased [Recovered/Resolved]
  - Haemoglobin decreased [Not Recovered/Not Resolved]
  - Dysgeusia [Recovered/Resolved]
